FAERS Safety Report 14144693 (Version 1)
Quarter: 2017Q4

REPORT INFORMATION
  Report Type: Other
  Country: CH (occurrence: CH)
  Receive Date: 20171031
  Receipt Date: 20171031
  Transmission Date: 20180321
  Serious: Yes (Hospitalization, Other)
  Sender: FDA-Public Use
  Company Number: CH-ASTELLAS-2017US043302

PATIENT
  Age: 66 Year
  Sex: Male

DRUGS (9)
  1. BETMIGA [Suspect]
     Active Substance: MIRABEGRON
     Indication: BLADDER SPASM
     Dosage: UNK UNK, UNKNOWN FREQ.
     Route: 048
     Dates: start: 201709, end: 20170929
  2. TAVANIC [Suspect]
     Active Substance: LEVOFLOXACIN
     Indication: PROSTATITIS
     Dosage: UNK UNK, UNKNOWN FREQ.
     Route: 048
     Dates: start: 201709, end: 20170929
  3. VOLTAREN [Concomitant]
     Active Substance: DICLOFENAC SODIUM
     Indication: PRODUCT USED FOR UNKNOWN INDICATION
     Dosage: 100 MG, ONCE DAILY (0-0-1-0)
     Route: 054
  4. CARDIAX ASS [Concomitant]
     Indication: PRODUCT USED FOR UNKNOWN INDICATION
     Dosage: 100 MG, ONCE DAILY (1-0-0-0)
     Route: 065
  5. LEXOTANIL [Concomitant]
     Active Substance: BROMAZEPAM
     Indication: PRODUCT USED FOR UNKNOWN INDICATION
     Dosage: 1.5 MG, TWICE DAILY (1-0-1-0)
     Route: 065
  6. BELOC                              /00376903/ [Concomitant]
     Active Substance: METOPROLOL TARTRATE
     Indication: PRODUCT USED FOR UNKNOWN INDICATION
     Dosage: 0.5 DF, TWICE DAILY (0.5-0-0.5-0)
     Route: 065
  7. ATORVASTATIN [Concomitant]
     Active Substance: ATORVASTATIN
     Indication: PRODUCT USED FOR UNKNOWN INDICATION
     Dosage: 40 MG, ONCE DAILY (0-0-1-0)
     Route: 065
  8. PERINDOPRIL/INDAPAMIDE [Concomitant]
     Active Substance: INDAPAMIDE\PERINDOPRIL
     Indication: PRODUCT USED FOR UNKNOWN INDICATION
     Dosage: 1 DF (10/2.5 MG), ONCE DAILY (1-0-0-0)
     Route: 065
  9. DETRUSITOL [Suspect]
     Active Substance: TOLTERODINE TARTRATE
     Indication: BLADDER SPASM
     Dosage: UNK UNK, UNKNOWN FREQ.
     Route: 048
     Dates: start: 201709, end: 20170929

REACTIONS (2)
  - Torsade de pointes [Recovered/Resolved]
  - Electrocardiogram QT prolonged [Recovered/Resolved]

NARRATIVE: CASE EVENT DATE: 20170929
